FAERS Safety Report 21226829 (Version 2)
Quarter: 2022Q3

REPORT INFORMATION
  Report Type: Spontaneous
  Country: FR (occurrence: FR)
  Receive Date: 20220818
  Receipt Date: 20220907
  Transmission Date: 20221026
  Serious: Yes (Death, Other)
  Sender: FDA-Public Use
  Company Number: FR-BAXTER-2022BAX017544

PATIENT
  Age: 60 Year
  Sex: Male

DRUGS (12)
  1. BORTEZOMIB [Suspect]
     Active Substance: BORTEZOMIB
     Indication: Plasma cell myeloma
     Dosage: FRONT-LINE THERAPY, TRIPLET BORTEZOMIB LENALIDOMIDE- DEXAMETHASONE (VRD), PENTA-REFRACTORY
     Route: 065
  2. CYCLOPHOSPHAMIDE [Suspect]
     Active Substance: CYCLOPHOSPHAMIDE
     Indication: Plasma cell myeloma
     Dosage: UNK
     Route: 065
  3. LENALIDOMIDE [Suspect]
     Active Substance: LENALIDOMIDE
     Indication: Plasma cell myeloma
     Dosage: FRONT-LINE THERAPY, TRIPLET BORTEZOMIB LENALIDOMIDE- DEXAMETHASONE (VRD), PENTA-REFRACTORY
     Route: 065
  4. DEXAMETHASONE [Suspect]
     Active Substance: DEXAMETHASONE
     Indication: Plasma cell myeloma
     Dosage: FRONT-LINE THERAPY, TRIPLET BORTEZOMIB LENALIDOMIDE- DEXAMETHASONE (VRD)
     Route: 065
  5. DEXAMETHASONE [Suspect]
     Active Substance: DEXAMETHASONE
     Dosage: TRIPLET COMBINATION CARFILZOMIB-POMALIDOMIDE DEXAMETHASONE (KPD)
     Route: 065
  6. DEXAMETHASONE [Suspect]
     Active Substance: DEXAMETHASONE
     Dosage: UNK
     Route: 065
  7. CARFILZOMIB [Suspect]
     Active Substance: CARFILZOMIB
     Indication: Plasma cell myeloma
     Dosage: TRIPLET COMBINATION CARFILZOMIB-POMALIDOMIDE DEXAMETHASONE (KPD), PENTA-REFRACTORY
     Route: 065
  8. POMALIDOMIDE [Suspect]
     Active Substance: POMALIDOMIDE
     Indication: Plasma cell myeloma
     Dosage: TRIPLET COMBINATION CARFILZOMIB-POMALIDOMIDE DEXAMETHASONE (KPD), PENTA-REFRACTORY
     Route: 065
  9. DARATUMUMAB [Suspect]
     Active Substance: DARATUMUMAB
     Indication: Plasma cell myeloma
     Dosage: PENTA-REFRACTORY
     Route: 065
  10. DABRAFENIB [Suspect]
     Active Substance: DABRAFENIB
     Indication: Plasma cell myeloma
     Dosage: BRAF INHIBITOR
     Route: 048
  11. TRAMETINIB [Suspect]
     Active Substance: TRAMETINIB
     Indication: Plasma cell myeloma
     Dosage: MEK INHIBITOR
     Route: 048
  12. PANOBINOSTAT [Suspect]
     Active Substance: PANOBINOSTAT
     Indication: Plasma cell myeloma
     Route: 065

REACTIONS (2)
  - Plasma cell myeloma [Fatal]
  - Drug ineffective [Unknown]
